FAERS Safety Report 5475922-3 (Version None)
Quarter: 2007Q4

REPORT INFORMATION
  Report Type: 
  Country: None (occurrence: None)
  Receive Date: 20071003
  Receipt Date: 20070921
  Transmission Date: 20080405
  Serious: Yes (Hospitalization)
  Sender: FDA-Public Use
  Company Number: FR-ELI_LILLY_AND_COMPANY-FR200708000642

PATIENT
  Age: 77 Year
  Sex: Female

DRUGS (11)
  1. COAPROVEL [Concomitant]
  2. VERAPAMIL [Concomitant]
  3. PRAVASTATIN [Concomitant]
  4. NOCTRAN 10 [Concomitant]
  5. SERETIDE [Concomitant]
  6. FORTEO [Suspect]
     Indication: OSTEOPOROSIS
     Dosage: 20 UG, DAILY (1/D)
     Route: 058
     Dates: start: 20070518, end: 20070801
  7. FORTEO [Suspect]
     Dosage: 20 UG, DAILY (1/D)
     Route: 058
     Dates: start: 20070816
  8. KARDEGIC [Concomitant]
     Dosage: 75 MG, DAILY (1/D)
     Route: 048
  9. IMOVANE [Concomitant]
     Dosage: 1 D/F, DAILY (1/D)
     Route: 048
  10. SEREVENT [Concomitant]
     Dosage: UNK, AS NEEDED
  11. PULMICORT [Concomitant]
     Dosage: UNK, AS NEEDED

REACTIONS (1)
  - MYOCARDIAL INFARCTION [None]
